FAERS Safety Report 4492780-4 (Version None)
Quarter: 2004Q4

REPORT INFORMATION
  Report Type: 
  Country: None (occurrence: None)
  Receive Date: 20041102
  Receipt Date: 20041102
  Transmission Date: 20050328
  Serious: No
  Sender: FDA-Public Use
  Company Number: None

PATIENT
  Age: 70 Year
  Sex: Female
  Weight: 85.7298 kg

DRUGS (5)
  1. NABUMETONE 500 BID [Suspect]
     Indication: OSTEOARTHRITIS
     Dosage: PO BID
     Route: 048
     Dates: start: 20040530
  2. TRAZODONE HCL [Concomitant]
  3. LIPITOR [Concomitant]
  4. ALTACE [Concomitant]
  5. HYCODEN [Concomitant]

REACTIONS (4)
  - HAEMATURIA [None]
  - PHARMACEUTICAL PRODUCT COMPLAINT [None]
  - RASH [None]
  - URTICARIA [None]
